FAERS Safety Report 9105038 (Version 5)
Quarter: 2013Q2

REPORT INFORMATION
  Report Type: Spontaneous
  Country: JP (occurrence: JP)
  Receive Date: 20130219
  Receipt Date: 20130416
  Transmission Date: 20140414
  Serious: Yes (Hospitalization, Other)
  Sender: FDA-Public Use
  Company Number: JP-UCBSA-078534

PATIENT
  Age: 77 Year
  Sex: Male
  Weight: 42.84 kg

DRUGS (9)
  1. E-KEPPRA [Suspect]
     Indication: EPILEPSY
     Dosage: ONE TIME DOSE: 500 MG, TOTAL DAILY DOSE: 1000 MG
     Route: 048
     Dates: start: 20130118, end: 20130207
  2. DEPAKENE-R [Suspect]
     Indication: EPILEPSY
     Dosage: TOTAL DAILY DOSE: 600 MG
     Route: 048
     Dates: start: 20130118, end: 20130201
  3. ALEVIATIN [Concomitant]
     Route: 048
  4. DORAL [Concomitant]
     Indication: SCHIZOPHRENIA
     Dosage: DAILY DOSE 15 MG
     Route: 048
     Dates: start: 20130108, end: 20130126
  5. FAMOTIDINE [Concomitant]
     Dosage: DAILY DOSE 20 MG
     Route: 048
     Dates: start: 20130120
  6. SEROQUEL [Concomitant]
     Indication: RESTLESSNESS
     Dosage: DAILY DOSE 100 MG
     Route: 048
     Dates: start: 20130118, end: 20130126
  7. SEROQUEL [Concomitant]
     Indication: SCHIZOPHRENIA
     Dosage: DAILY DOSE 100 MG
     Route: 048
     Dates: start: 20130118, end: 20130126
  8. SEROQUEL [Concomitant]
     Indication: RESTLESSNESS
     Dosage: DAILY DOSE: 100 MG
     Route: 048
     Dates: start: 20130214
  9. SEROQUEL [Concomitant]
     Indication: SCHIZOPHRENIA
     Dosage: DAILY DOSE: 100 MG
     Route: 048
     Dates: start: 20130214

REACTIONS (1)
  - Inappropriate antidiuretic hormone secretion [Recovered/Resolved]
